FAERS Safety Report 23986850 (Version 2)
Quarter: 2024Q3

REPORT INFORMATION
  Report Type: Report from Study
  Country: CA (occurrence: CA)
  Receive Date: 20240618
  Receipt Date: 20240703
  Transmission Date: 20241016
  Serious: Yes (Death)
  Sender: REGENERON
  Company Number: CA-BAYER-2024A086619

PATIENT
  Sex: Male

DRUGS (1)
  1. EYLEA [Suspect]
     Active Substance: AFLIBERCEPT
     Indication: Age-related macular degeneration
     Dosage: UNK, SOLUTION FOR INJECTION, 40 MG/ML
     Dates: start: 20230817

REACTIONS (1)
  - Death [Fatal]

NARRATIVE: CASE EVENT DATE: 20240613
